FAERS Safety Report 19457813 (Version 1)
Quarter: 2021Q2

REPORT INFORMATION
  Report Type: Spontaneous
  Country: NZ (occurrence: NZ)
  Receive Date: 20210624
  Receipt Date: 20210624
  Transmission Date: 20210717
  Serious: Yes (Other)
  Sender: FDA-Public Use
  Company Number: NZ-MYLANLABS-2021M1036492

PATIENT
  Sex: Male

DRUGS (1)
  1. CLOZARIL [Suspect]
     Active Substance: CLOZAPINE
     Indication: SCHIZOPHRENIA
     Dosage: UNK
     Route: 048
     Dates: start: 20210223, end: 20210506

REACTIONS (4)
  - Sedation [Unknown]
  - Psychotic disorder [Unknown]
  - Drug ineffective [Unknown]
  - Hypotension [Unknown]

NARRATIVE: CASE EVENT DATE: 2021
